FAERS Safety Report 25314162 (Version 2)
Quarter: 2025Q2

REPORT INFORMATION
  Report Type: Spontaneous
  Country: FR (occurrence: FR)
  Receive Date: 20250514
  Receipt Date: 20250523
  Transmission Date: 20250716
  Serious: Yes (Hospitalization)
  Sender: TEVA
  Company Number: FR-TEVA-VS-3330273

PATIENT
  Age: 75 Year
  Sex: Male

DRUGS (4)
  1. METHOTREXATE [Suspect]
     Active Substance: METHOTREXATE
     Indication: Erythrodermic psoriasis
     Route: 065
  2. SALICYLIC ACID [Suspect]
     Active Substance: SALICYLIC ACID
     Indication: Erythrodermic psoriasis
     Route: 061
  3. ADALIMUMAB [Suspect]
     Active Substance: ADALIMUMAB
     Indication: Erythrodermic psoriasis
     Route: 065
  4. USTEKINUMAB [Suspect]
     Active Substance: USTEKINUMAB
     Indication: Erythrodermic psoriasis
     Route: 065

REACTIONS (13)
  - Drug ineffective [Unknown]
  - Metabolic acidosis [Recovering/Resolving]
  - Agitation [Recovering/Resolving]
  - Product dispensing error [Unknown]
  - Multiple organ dysfunction syndrome [Recovering/Resolving]
  - Product prescribing error [Unknown]
  - Rhabdomyolysis [Recovering/Resolving]
  - NSAID exacerbated respiratory disease [Recovering/Resolving]
  - Hypoacusis [Recovering/Resolving]
  - Hypernatraemia [Recovering/Resolving]
  - Toxicity to various agents [Recovering/Resolving]
  - Accidental overdose [Unknown]
  - Coagulopathy [Recovering/Resolving]
